FAERS Safety Report 12310794 (Version 3)
Quarter: 2016Q3

REPORT INFORMATION
  Report Type: Report from Study
  Country: US (occurrence: US)
  Receive Date: 20160427
  Receipt Date: 20160701
  Transmission Date: 20161109
  Serious: Yes (Death, Other)
  Sender: FDA-Public Use
  Company Number: PHEH2016US010164

PATIENT
  Age: 88 Year
  Sex: Male
  Weight: 59.87 kg

DRUGS (2)
  1. AMIODARONE [Concomitant]
     Active Substance: AMIODARONE
     Indication: PRODUCT USED FOR UNKNOWN INDICATION
     Route: 005
  2. ENTRESTO [Suspect]
     Active Substance: SACUBITRIL\VALSARTAN
     Indication: CARDIAC FAILURE CHRONIC
     Dosage: 200 MG, BID
     Route: 048
     Dates: start: 20150615

REACTIONS (6)
  - Restless legs syndrome [Unknown]
  - Peripheral venous disease [Unknown]
  - Death [Fatal]
  - Arrhythmia [Unknown]
  - Peripheral vascular disorder [Unknown]
  - Disease progression [Unknown]

NARRATIVE: CASE EVENT DATE: 20160315
